FAERS Safety Report 22049441 (Version 1)
Quarter: 2023Q1

REPORT INFORMATION
  Report Type: Spontaneous
  Country: US (occurrence: US)
  Receive Date: 20230301
  Receipt Date: 20230301
  Transmission Date: 20230417
  Serious: Yes (Other)
  Sender: FDA-Public Use
  Company Number: US-PFIZER INC-PV202300037567

PATIENT

DRUGS (1)
  1. ABROCITINIB [Suspect]
     Active Substance: ABROCITINIB
     Dosage: UNK, 1X/DAY

REACTIONS (2)
  - Parkinson^s disease [Unknown]
  - Therapeutic response unexpected [Unknown]
